FAERS Safety Report 17266864 (Version 1)
Quarter: 2020Q1

REPORT INFORMATION
  Report Type: Spontaneous
  Country: FR (occurrence: FR)
  Receive Date: 20200114
  Receipt Date: 20200114
  Transmission Date: 20200409
  Serious: Yes (Other)
  Sender: FDA-Public Use
  Company Number: FR-PFIZER INC-2020010184

PATIENT
  Age: 59 Year
  Sex: Male
  Weight: 94 kg

DRUGS (5)
  1. SOLU-MEDROL [Suspect]
     Active Substance: METHYLPREDNISOLONE SODIUM SUCCINATE
     Indication: PROPHYLAXIS OF NAUSEA AND VOMITING
     Dosage: 60 MG, SINGLE
     Route: 042
     Dates: start: 20191106, end: 20191106
  2. OXALIPLATINE KABI [Suspect]
     Active Substance: OXALIPLATIN
     Indication: COLORECTAL CANCER METASTATIC
     Dosage: 100 MG, SINGLE
     Route: 042
     Dates: start: 20191106, end: 20191106
  3. AVASTIN [Suspect]
     Active Substance: BEVACIZUMAB
     Indication: COLORECTAL CANCER METASTATIC
     Dosage: 475 MG, SINGLE
     Route: 042
     Dates: start: 20191106, end: 20191106
  4. LEVOFOLINATE SODIUM [Suspect]
     Active Substance: LEVOLEUCOVORIN DISODIUM
     Indication: COLORECTAL CANCER METASTATIC
     Dosage: 400 MG, SINGLE
     Route: 042
     Dates: start: 20191106, end: 20191106
  5. ZOPHREN [ONDANSETRON HYDROCHLORIDE] [Suspect]
     Active Substance: ONDANSETRON
     Indication: PROPHYLAXIS OF NAUSEA AND VOMITING
     Dosage: 8 MG, SINGLE
     Route: 048
     Dates: start: 20191106, end: 20191106

REACTIONS (4)
  - Dyspnoea [Recovered/Resolved]
  - Product use in unapproved indication [Unknown]
  - Asthmatic crisis [Recovered/Resolved]
  - Off label use [Unknown]

NARRATIVE: CASE EVENT DATE: 20191106
